FAERS Safety Report 8595897 (Version 2)
Quarter: 2013Q2

REPORT INFORMATION
  Report Type: Spontaneous
  Country: US (occurrence: US)
  Receive Date: 20120605
  Receipt Date: 20130620
  Transmission Date: 20140414
  Serious: No
  Sender: FDA-Public Use
  Company Number: US-ASTRAZENECA-2012SE34395

PATIENT
  Age: 30 Year
  Sex: Male
  Weight: 88.5 kg

DRUGS (11)
  1. NEXIUM [Suspect]
     Indication: GASTROOESOPHAGEAL REFLUX DISEASE
     Dosage: SOMETIMES TWICE SOMETIMES ONCE
     Route: 048
     Dates: start: 2005
  2. NEXIUM [Suspect]
     Indication: HIATUS HERNIA
     Dosage: SOMETIMES TWICE SOMETIMES ONCE
     Route: 048
     Dates: start: 2005
  3. PRILOSEC [Suspect]
     Route: 048
  4. PREVACID [Concomitant]
  5. ZANTAC [Concomitant]
  6. TUMS [Concomitant]
  7. ROLAIDS [Concomitant]
  8. ACIPHEX [Concomitant]
  9. ALKA SELZER [Concomitant]
  10. PEPTO BISMOL [Concomitant]
  11. MYLANTA [Concomitant]

REACTIONS (11)
  - Osteoporosis [Unknown]
  - Multiple fractures [Unknown]
  - Ligament sprain [Unknown]
  - Ankle fracture [Unknown]
  - Osteopenia [Unknown]
  - Joint injury [Unknown]
  - Bone pain [Unknown]
  - Calcium deficiency [Unknown]
  - Vitamin D deficiency [Unknown]
  - Dyspepsia [Unknown]
  - Depression [Unknown]
